FAERS Safety Report 25701135 (Version 1)
Quarter: 2025Q3

REPORT INFORMATION
  Report Type: Spontaneous
  Country: US (occurrence: None)
  Receive Date: 20250818
  Receipt Date: 20250818
  Transmission Date: 20251021
  Serious: Yes (Other)
  Sender: FDA-CTU
  Company Number: None

PATIENT
  Age: 33 Year
  Sex: Female

DRUGS (4)
  1. INGREZZA [Suspect]
     Active Substance: VALBENAZINE DITOSYLATE
     Indication: Dystonia
     Dosage: FREQUENCY : DAILY;?
     Dates: start: 20250724
  2. Citalopram 10mg Tablets [Concomitant]
  3. Gabapentin 600mg Tablets [Concomitant]
  4. Topiramate 200mg Tablets [Concomitant]

REACTIONS (2)
  - Suicidal ideation [None]
  - Therapy cessation [None]

NARRATIVE: CASE EVENT DATE: 20250727
